FAERS Safety Report 25169128 (Version 3)
Quarter: 2025Q4

REPORT INFORMATION
  Report Type: Report from Study
  Country: CA (occurrence: CA)
  Receive Date: 20250407
  Receipt Date: 20251017
  Transmission Date: 20260118
  Serious: Yes (Hospitalization)
  Sender: OTSUKA
  Company Number: CA-MMM-Otsuka-3ULPOIW7

PATIENT
  Sex: Male

DRUGS (2)
  1. ARIPIPRAZOLE [Suspect]
     Active Substance: ARIPIPRAZOLE
     Indication: Product used for unknown indication
     Dosage: 300 MG EVERY 5 WEEKS
  2. ARIPIPRAZOLE [Suspect]
     Active Substance: ARIPIPRAZOLE
     Dosage: 300 MG EVERY 4 WEEKS

REACTIONS (3)
  - Psychotic symptom [Unknown]
  - Insomnia [Recovered/Resolved]
  - Product dose omission issue [Unknown]
